FAERS Safety Report 9139199 (Version 1)
Quarter: 2013Q1

REPORT INFORMATION
  Report Type: Spontaneous
  Country: EC (occurrence: EC)
  Receive Date: 20130305
  Receipt Date: 20130305
  Transmission Date: 20140127
  Serious: Yes (Other)
  Sender: FDA-Public Use
  Company Number: PHHY2013EC020693

PATIENT
  Sex: Male

DRUGS (1)
  1. EXFORGE HCT [Suspect]
     Indication: HYPERTENSION
     Dosage: 1 DF (VALS 160 MG / AMLO 10 MG / HYDR 12.5 MG), QD
     Route: 048
     Dates: start: 201209

REACTIONS (1)
  - Inguinal hernia [Recovering/Resolving]
